FAERS Safety Report 10449790 (Version 1)
Quarter: 2014Q3

REPORT INFORMATION
  Report Type: Spontaneous
  Country: US (occurrence: None)
  Receive Date: 20140911
  Receipt Date: 20140911
  Transmission Date: 20150326
  Serious: No
  Sender: FDA-Public Use
  Company Number: None

PATIENT
  Sex: Female

DRUGS (1)
  1. ENBREL [Suspect]
     Active Substance: ETANERCEPT
     Route: 058
     Dates: start: 20131217

REACTIONS (6)
  - Irritability [None]
  - Fatigue [None]
  - Memory impairment [None]
  - Personality change [None]
  - Anger [None]
  - Pain [None]
